FAERS Safety Report 11282745 (Version 4)
Quarter: 2015Q3

REPORT INFORMATION
  Report Type: Report from Study
  Country: US (occurrence: US)
  Receive Date: 20150720
  Receipt Date: 20150928
  Transmission Date: 20151125
  Serious: Yes (Other)
  Sender: FDA-Public Use
  Company Number: US-AMGEN-USASP2015059813

PATIENT
  Age: 75 Year
  Sex: Female

DRUGS (1)
  1. PROLIA [Suspect]
     Active Substance: DENOSUMAB
     Indication: PRODUCT USED FOR UNKNOWN INDICATION
     Dosage: UNK
     Route: 065
     Dates: start: 201410

REACTIONS (26)
  - Gait disturbance [Unknown]
  - Joint range of motion decreased [Unknown]
  - Discomfort [Unknown]
  - Abasia [Not Recovered/Not Resolved]
  - Musculoskeletal chest pain [Not Recovered/Not Resolved]
  - Insomnia [Unknown]
  - Bedridden [Unknown]
  - Pain [Unknown]
  - Chills [Unknown]
  - Pruritus [Unknown]
  - Activities of daily living impaired [Unknown]
  - Pain in jaw [Unknown]
  - Joint swelling [Unknown]
  - Dyspnoea [Unknown]
  - Dizziness [Unknown]
  - Disability [Not Recovered/Not Resolved]
  - Pain in extremity [Not Recovered/Not Resolved]
  - Mobility decreased [Not Recovered/Not Resolved]
  - Night sweats [Unknown]
  - Cough [Unknown]
  - Vision blurred [Unknown]
  - Urinary incontinence [Unknown]
  - Muscular weakness [Unknown]
  - Limb discomfort [Unknown]
  - Fatigue [Unknown]
  - Bone pain [Not Recovered/Not Resolved]

NARRATIVE: CASE EVENT DATE: 2015
